FAERS Safety Report 24145444 (Version 1)
Quarter: 2024Q3

REPORT INFORMATION
  Report Type: Spontaneous
  Country: CA (occurrence: CA)
  Receive Date: 20240729
  Receipt Date: 20240729
  Transmission Date: 20241016
  Serious: Yes (Other)
  Sender: NOVO NORDISK
  Company Number: CA-NOVOPROD-1258794

PATIENT
  Age: 51 Year
  Sex: Male
  Weight: 120 kg

DRUGS (7)
  1. OZEMPIC [Suspect]
     Active Substance: SEMAGLUTIDE
     Indication: Neurosarcoidosis
     Dosage: UNK
     Dates: start: 2024
  2. INFLECTRA [Suspect]
     Active Substance: INFLIXIMAB-DYYB
     Dosage: 5MG/KG, EVERY 8 WEEKS (WEEK 0,2,6 THEN Q 8 WEEKS)
     Route: 042
     Dates: start: 20231121
  3. INFLECTRA [Suspect]
     Active Substance: INFLIXIMAB-DYYB
     Dosage: 585 MG, AFTER 8 WEEKS AND 1 DAY (REINDUCTION WEEKS 0,2,6 THEN MAINTAINANCE EVERY 8 WEEKS)
     Route: 042
     Dates: start: 20240703
  4. INFLECTRA [Suspect]
     Active Substance: INFLIXIMAB-DYYB
     Dosage: 600 MG (AFTER 8 WEEKS)
     Route: 042
     Dates: start: 20240313
  5. INFLECTRA [Suspect]
     Active Substance: INFLIXIMAB-DYYB
     Dosage: 1 DF, EVERY 8 WEEKS (REINDUCTION WEEKS 0,2,6 THEN MAINTAINANCE EVERY 8 WEEKS)
     Route: 042
     Dates: start: 20240507
  6. INFLECTRA [Suspect]
     Active Substance: INFLIXIMAB-DYYB
     Indication: Neurosarcoidosis
     Dosage: 5MG/KG, EVERY 8 WEEKS (WEEK 0,2,6 THEN Q 8 WEEKS)
     Route: 042
     Dates: start: 20231011
  7. INFLECTRA [Suspect]
     Active Substance: INFLIXIMAB-DYYB
     Dosage: 545 MG, PRESCRIBED 5MG/KG, EVERY 8 WEEKS (REINDUCTION WEEK 0,2,6 THEN MAINTAINANCE EVERY 8 WEEKS, 1
     Route: 042
     Dates: start: 20240117

REACTIONS (4)
  - Liver injury [Unknown]
  - Hepatic enzyme increased [Not Recovered/Not Resolved]
  - Weight decreased [Unknown]
  - Off label use [Unknown]

NARRATIVE: CASE EVENT DATE: 20240101
